FAERS Safety Report 4834389-6 (Version None)
Quarter: 2005Q4

REPORT INFORMATION
  Report Type: 
  Country: None (occurrence: None)
  Receive Date: 20051122
  Receipt Date: 20051110
  Transmission Date: 20060501
  Serious: Yes (Hospitalization)
  Sender: FDA-Public Use
  Company Number: PHRM2005FR02966

PATIENT
  Age: 47 Year
  Sex: Male
  Weight: 130 kg

DRUGS (6)
  1. TEGRETOL [Suspect]
     Indication: DEPRESSION
     Dosage: 800 MG, QD
     Route: 048
     Dates: start: 20050615, end: 20050810
  2. XANAX [Concomitant]
     Dosage: PRN
     Route: 048
  3. TRILEPTAL [Suspect]
     Indication: TREMOR
     Dosage: 60 MG/ML, BID
     Route: 048
     Dates: start: 20040901, end: 20050810
  4. EFFEXOR [Suspect]
     Indication: DEPRESSION
     Dosage: 75 MG, TID
     Route: 048
     Dates: start: 20040901, end: 20050810
  5. ZYPREXA [Suspect]
     Indication: DEPRESSION
     Dosage: 5 MG, QD
     Route: 048
     Dates: start: 20050515, end: 20050806
  6. ATACAND [Suspect]
     Indication: ESSENTIAL HYPERTENSION
     Dosage: 16 MG, QD
     Route: 048
     Dates: end: 20050806

REACTIONS (16)
  - ALANINE AMINOTRANSFERASE INCREASED [None]
  - ANAEMIA [None]
  - ASPARTATE AMINOTRANSFERASE INCREASED [None]
  - BLOOD ALKALINE PHOSPHATASE INCREASED [None]
  - DERMATITIS EXFOLIATIVE [None]
  - DRUG RASH WITH EOSINOPHILIA AND SYSTEMIC SYMPTOMS [None]
  - EOSINOPHIL COUNT INCREASED [None]
  - FACE OEDEMA [None]
  - GAMMA-GLUTAMYLTRANSFERASE INCREASED [None]
  - LIVER DISORDER [None]
  - LYMPHOPENIA [None]
  - PROTEINURIA [None]
  - PYREXIA [None]
  - RASH PRURITIC [None]
  - RENAL TUBULAR DISORDER [None]
  - URTICARIA [None]
